FAERS Safety Report 22102894 (Version 1)
Quarter: 2023Q1

REPORT INFORMATION
  Report Type: Spontaneous
  Country: CN (occurrence: CN)
  Receive Date: 20230316
  Receipt Date: 20230316
  Transmission Date: 20230418
  Serious: Yes (Other)
  Sender: FDA-Public Use
  Company Number: CN-009507513-2303CHN004321

PATIENT
  Age: 66 Year
  Sex: Male
  Weight: 70 kg

DRUGS (1)
  1. CILASTATIN SODIUM\IMIPENEM [Suspect]
     Active Substance: CILASTATIN SODIUM\IMIPENEM
     Indication: Sepsis
     Dosage: 0.5 GRAM, QD
     Route: 041
     Dates: start: 20220726, end: 20220728

REACTIONS (4)
  - Delirium [Recovering/Resolving]
  - Neurological symptom [Recovering/Resolving]
  - Haemodialysis [Unknown]
  - Product use issue [Unknown]

NARRATIVE: CASE EVENT DATE: 20220726
